FAERS Safety Report 15061233 (Version 1)
Quarter: 2018Q2

REPORT INFORMATION
  Report Type: Spontaneous
  Country: US (occurrence: US)
  Receive Date: 20180625
  Receipt Date: 20180625
  Transmission Date: 20180711
  Serious: No
  Sender: FDA-Public Use
  Company Number: US-ROCHE-2009763

PATIENT
  Sex: Male

DRUGS (1)
  1. XELODA [Suspect]
     Active Substance: CAPECITABINE
     Indication: RECTAL CANCER
     Dosage: 2500MG IN AM AND 2000MG IN PM ON DAYS, ONGOING
     Route: 048
     Dates: start: 20170620

REACTIONS (1)
  - Paraesthesia [Unknown]
